FAERS Safety Report 9490361 (Version 1)
Quarter: 2013Q3

REPORT INFORMATION
  Report Type: Report from Study
  Country: US (occurrence: US)
  Receive Date: 20130830
  Receipt Date: 20130830
  Transmission Date: 20140515
  Serious: Yes (Other)
  Sender: FDA-Public Use
  Company Number: US-ROCHE-1267321

PATIENT
  Sex: Female
  Weight: 73.09 kg

DRUGS (13)
  1. HERCEPTIN [Suspect]
     Indication: BREAST CANCER
     Route: 065
     Dates: start: 201110
  2. XELODA [Suspect]
     Indication: BREAST CANCER
     Route: 065
  3. ABRAXANE [Suspect]
     Indication: BREAST CANCER
     Route: 065
  4. ABRAXANE [Suspect]
     Route: 065
     Dates: start: 201111
  5. ATENOLOL [Concomitant]
     Route: 048
  6. SYNTHROID [Concomitant]
     Route: 048
  7. LEXAPRO [Concomitant]
     Route: 048
  8. LEVETIRACETAM [Concomitant]
     Route: 048
  9. ATIVAN [Concomitant]
     Route: 048
  10. PROTONIX (OMEPRAZOLE) [Concomitant]
  11. HALAVEN [Concomitant]
     Route: 065
     Dates: start: 201110
  12. TAXOTERE [Concomitant]
  13. FASLODEX [Concomitant]

REACTIONS (2)
  - Disease progression [Unknown]
  - Toxicity to various agents [Unknown]
